FAERS Safety Report 15164557 (Version 1)
Quarter: 2018Q3

REPORT INFORMATION
  Report Type: Spontaneous
  Country: DE (occurrence: DE)
  Receive Date: 20180719
  Receipt Date: 20180719
  Transmission Date: 20181010
  Serious: Yes (Other)
  Sender: FDA-Public Use
  Company Number: DE-MERCK KGAA-2052384

PATIENT
  Sex: Female

DRUGS (11)
  1. EUTHYROX [Suspect]
     Active Substance: LEVOTHYROXINE SODIUM
  2. EUTHYROX [Suspect]
     Active Substance: LEVOTHYROXINE SODIUM
     Dates: start: 20180628
  3. EUTHYROX [Suspect]
     Active Substance: LEVOTHYROXINE SODIUM
  4. EUTHYROX [Suspect]
     Active Substance: LEVOTHYROXINE SODIUM
     Dates: start: 20171107
  5. MAGNESIUM [Concomitant]
     Active Substance: MAGNESIUM
  6. NOVOTHYROX [Suspect]
     Active Substance: LEVOTHYROXINE SODIUM
     Indication: POST PROCEDURAL HYPOTHYROIDISM
     Dates: start: 20170202
  7. EUTHYROX [Suspect]
     Active Substance: LEVOTHYROXINE SODIUM
     Dates: start: 20170831
  8. EUTHYROX [Suspect]
     Active Substance: LEVOTHYROXINE SODIUM
     Dates: start: 20170329
  9. VITAMIN D [Concomitant]
     Active Substance: CHOLECALCIFEROL
  10. CALCIUM [Concomitant]
     Active Substance: CALCIUM
  11. ASPIRIN. [Concomitant]
     Active Substance: ASPIRIN

REACTIONS (54)
  - Hyperthyroidism [None]
  - Exercise tolerance decreased [None]
  - Feeling cold [None]
  - Dark circles under eyes [None]
  - Malaise [None]
  - Thyroxine free increased [None]
  - Aggression [None]
  - Irritability [None]
  - Nasopharyngitis [None]
  - Neck pain [None]
  - Depression [None]
  - Depressed mood [None]
  - Nausea [None]
  - Fatigue [None]
  - Back pain [None]
  - Hypertension [None]
  - Vitamin D decreased [None]
  - Pain in extremity [None]
  - Blood thyroid stimulating hormone decreased [None]
  - Mood swings [None]
  - Gait disturbance [None]
  - Disturbance in attention [None]
  - Hypotension [None]
  - Myalgia [None]
  - Blood cholesterol increased [None]
  - Heart rate increased [None]
  - Nervousness [None]
  - Temperature intolerance [None]
  - Heart rate decreased [None]
  - Abdominal pain upper [None]
  - Headache [None]
  - Insomnia [None]
  - Dizziness [None]
  - Weight increased [None]
  - Migraine [None]
  - Arthralgia [None]
  - Memory impairment [None]
  - Hypoglycaemia [None]
  - Blood thyroid stimulating hormone increased [None]
  - Apathy [None]
  - Impatience [None]
  - Menorrhagia [None]
  - Restlessness [None]
  - Panic attack [None]
  - Pallor [None]
  - Hyperhidrosis [None]
  - Agitation [None]
  - Dyspnoea [None]
  - White blood cell count decreased [None]
  - Dyspepsia [None]
  - Stress [None]
  - Flatulence [None]
  - Hot flush [None]
  - Dysmenorrhoea [None]

NARRATIVE: CASE EVENT DATE: 2017
